FAERS Safety Report 9013978 (Version 1)
Quarter: 2013Q1

REPORT INFORMATION
  Report Type: Spontaneous
  Country: US (occurrence: None)
  Receive Date: 20130109
  Receipt Date: 20130109
  Transmission Date: 20140127
  Serious: No
  Sender: FDA-Public Use
  Company Number: None

PATIENT
  Age: 73 Year
  Sex: Male
  Weight: 99.79 kg

DRUGS (1)
  1. AXIRON, 30 MG, LILLY [Suspect]
     Indication: BLOOD TESTOSTERONE DECREASED
     Dates: start: 20121001, end: 20121224

REACTIONS (3)
  - Skin irritation [None]
  - Hot flush [None]
  - Night sweats [None]
